FAERS Safety Report 5764137-7 (Version None)
Quarter: 2008Q2

REPORT INFORMATION
  Report Type: 
  Country: None (occurrence: None)
  Receive Date: 20080604
  Receipt Date: 20080523
  Transmission Date: 20081010
  Serious: Yes (Hospitalization)
  Sender: FDA-Public Use
  Company Number: CLOF-1000179

PATIENT
  Sex: Female

DRUGS (2)
  1. CLOFARABINE (CLOFARABINE) SOLUTION FOR INFUSION [Suspect]
     Indication: STEM CELL TRANSPLANT
     Dosage: 30 MG/M2, QDX5, INTRAVENOUS
     Route: 042
  2. BUSULFAN (BUSULFAN) [Suspect]
     Indication: STEM CELL TRANSPLANT
     Dosage: 3.2 MG/KG, QD, INTRAVENOUS
     Route: 042

REACTIONS (2)
  - ASCITES [None]
  - PLEURAL EFFUSION [None]
